FAERS Safety Report 7744263-3 (Version None)
Quarter: 2011Q3

REPORT INFORMATION
  Report Type: 
  Country: None (occurrence: None)
  Receive Date: 20110912
  Receipt Date: 20110901
  Transmission Date: 20111222
  Serious: Yes (Hospitalization, Other)
  Sender: FDA-Public Use
  Company Number: PHHY2011RS77927

PATIENT
  Age: 31 Year
  Sex: Female

DRUGS (2)
  1. ETHANOL [Suspect]
  2. PROPRANOLOL [Suspect]
     Dosage: 3.6 G, UNK

REACTIONS (11)
  - ARRHYTHMIA [None]
  - SUPRAVENTRICULAR TACHYCARDIA [None]
  - HEART RATE DECREASED [None]
  - ELECTROCARDIOGRAM QRS COMPLEX PROLONGED [None]
  - HYPOGLYCAEMIA [None]
  - RESPIRATORY RATE DECREASED [None]
  - HYPOVENTILATION [None]
  - COMA [None]
  - OVERDOSE [None]
  - HYPOTENSION [None]
  - CONVULSION [None]
